FAERS Safety Report 13717482 (Version 1)
Quarter: 2017Q3

REPORT INFORMATION
  Report Type: Spontaneous
  Country: SE (occurrence: SE)
  Receive Date: 20170705
  Receipt Date: 20170705
  Transmission Date: 20171127
  Serious: Yes (Other)
  Sender: FDA-Public Use
  Company Number: PHHY2017SE095614

PATIENT
  Age: 83 Year
  Sex: Male

DRUGS (2)
  1. EXELON PATCH [Suspect]
     Active Substance: RIVASTIGMINE
     Indication: COGNITIVE DISORDER
  2. EXELON PATCH [Suspect]
     Active Substance: RIVASTIGMINE
     Indication: PARKINSONISM
     Dosage: 4.6 MG/24 HOUR (1 DF)
     Route: 062
     Dates: start: 20170601, end: 20170603

REACTIONS (2)
  - Arrhythmia [Recovered/Resolved]
  - Altered state of consciousness [Recovered/Resolved]

NARRATIVE: CASE EVENT DATE: 20170603
